FAERS Safety Report 14384830 (Version 2)
Quarter: 2021Q4

REPORT INFORMATION
  Report Type: Report from Study
  Country: CA (occurrence: CA)
  Receive Date: 20180115
  Receipt Date: 20211126
  Transmission Date: 20220303
  Serious: Yes (Hospitalization, Other)
  Sender: FDA-Public Use
  Company Number: CA-JNJFOC-20171120949

PATIENT
  Age: 55 Year
  Sex: Male
  Weight: 72 kg

DRUGS (2)
  1. STELARA [Suspect]
     Active Substance: USTEKINUMAB
     Indication: Crohn^s disease
     Dosage: STRENGTH = 90 MG, ?02/JUN/2017
     Route: 058
     Dates: start: 20151002
  2. STELARA [Suspect]
     Active Substance: USTEKINUMAB
     Dosage: PATIENT RECEIVED DOSE ON 17-NOV-2021
     Route: 058
     Dates: start: 20160223

REACTIONS (3)
  - Intestinal resection [Recovered/Resolved]
  - Off label use [Unknown]
  - Product use issue [Unknown]

NARRATIVE: CASE EVENT DATE: 20160223
